FAERS Safety Report 5701826-4 (Version None)
Quarter: 2008Q2

REPORT INFORMATION
  Report Type: 
  Country: None (occurrence: None)
  Receive Date: 20080408
  Receipt Date: 20080325
  Transmission Date: 20081010
  Serious: Yes (Hospitalization)
  Sender: FDA-Public Use
  Company Number: 2008AL001881

PATIENT
  Age: 16 Year
  Sex: Male

DRUGS (1)
  1. CARBAMAZEPINE [Suspect]
     Indication: EPILEPSY
     Dosage: 600 MG; QD

REACTIONS (8)
  - AMMONIA INCREASED [None]
  - BLOOD ALBUMIN DECREASED [None]
  - BLOOD AMINO ACID LEVEL INCREASED [None]
  - HYPERBILIRUBINAEMIA [None]
  - JAUNDICE [None]
  - LIVER INJURY [None]
  - PROTHROMBIN TIME PROLONGED [None]
  - THERAPEUTIC AGENT TOXICITY [None]
